FAERS Safety Report 9342505 (Version 1)
Quarter: 2013Q2

REPORT INFORMATION
  Report Type: Spontaneous
  Country: IT (occurrence: IT)
  Receive Date: 20130611
  Receipt Date: 20130611
  Transmission Date: 20140414
  Serious: Yes (Other)
  Sender: FDA-Public Use
  Company Number: IT-TEVA-410469ISR

PATIENT
  Age: 32 Year
  Sex: Male

DRUGS (2)
  1. CARBOLITHIUM [Suspect]
     Route: 048
  2. ZYPREXA [Suspect]
     Route: 048

REACTIONS (12)
  - Multiple sclerosis [Unknown]
  - Fatigue [Unknown]
  - Muscle rigidity [Unknown]
  - Personality change [Unknown]
  - Somnolence [Unknown]
  - Visual impairment [Unknown]
  - Neurological symptom [Unknown]
  - Weight fluctuation [Unknown]
  - Constipation [Unknown]
  - Dry mouth [Unknown]
  - Premature ejaculation [Unknown]
  - Extrapyramidal disorder [Unknown]
